FAERS Safety Report 6904625-0 (Version None)
Quarter: 2010Q3

REPORT INFORMATION
  Report Type: 
  Country: None (occurrence: None)
  Receive Date: 20100804
  Receipt Date: 20090624
  Transmission Date: 20110219
  Serious: Yes (Other)
  Sender: FDA-Public Use
  Company Number: US-PFIZER INC-2009195366

PATIENT
  Sex: Female
  Weight: 79.378 kg

DRUGS (2)
  1. LYRICA [Suspect]
     Indication: POST HERPETIC NEURALGIA
     Dosage: 75 MG, 3X/DAY
     Dates: start: 20060101, end: 20060101
  2. LOTENSIN [Concomitant]
     Indication: HYPERTENSION
     Dosage: UNK

REACTIONS (4)
  - AMNESIA [None]
  - APHASIA [None]
  - MENTAL IMPAIRMENT [None]
  - READING DISORDER [None]
